FAERS Safety Report 12363259 (Version 1)
Quarter: 2016Q2

REPORT INFORMATION
  Report Type: Spontaneous
  Country: US (occurrence: US)
  Receive Date: 20160512
  Receipt Date: 20160512
  Transmission Date: 20160815
  Serious: No
  Sender: FDA-Public Use
  Company Number: US-UCBSA-2015007511

PATIENT
  Sex: Male

DRUGS (1)
  1. CIMZIA [Suspect]
     Active Substance: CERTOLIZUMAB PEGOL
     Indication: RHEUMATOID ARTHRITIS
     Dosage: 400 MG, MONTHLY (QM); STRENGTH: 200 MG
     Route: 058
     Dates: start: 20110530, end: 20131007

REACTIONS (2)
  - Sinusitis [Unknown]
  - Dry skin [Unknown]

NARRATIVE: CASE EVENT DATE: 2013
